FAERS Safety Report 6534058-0 (Version None)
Quarter: 2010Q1

REPORT INFORMATION
  Report Type: 
  Country: None (occurrence: None)
  Receive Date: 20100112
  Receipt Date: 20100104
  Transmission Date: 20100710
  Serious: Yes (Other)
  Sender: FDA-Public Use
  Company Number: US-JNJFOC-20100101866

PATIENT
  Sex: Female
  Weight: 81.65 kg

DRUGS (2)
  1. LEVAQUIN [Suspect]
     Indication: SINUSITIS
     Route: 048
  2. LEVAQUIN [Suspect]
     Route: 048

REACTIONS (8)
  - ABASIA [None]
  - AMNESIA [None]
  - ARTHRALGIA [None]
  - ARTHROPATHY [None]
  - CONVULSION [None]
  - GAIT DISTURBANCE [None]
  - JOINT SWELLING [None]
  - TENDON PAIN [None]
